FAERS Safety Report 20089473 (Version 1)
Quarter: 2021Q4

REPORT INFORMATION
  Report Type: Spontaneous
  Country: BR (occurrence: BR)
  Receive Date: 20211119
  Receipt Date: 20211119
  Transmission Date: 20220303
  Serious: Yes (Other)
  Sender: FDA-Public Use
  Company Number: None

PATIENT
  Sex: Male

DRUGS (2)
  1. PEMBROLIZUMAB [Suspect]
     Active Substance: PEMBROLIZUMAB
     Dosage: UNK
  2. AXITINIB [Suspect]
     Active Substance: AXITINIB
     Dosage: 5 MILLIGRAM, TWICE DAILY
     Route: 048

REACTIONS (3)
  - Hepatotoxicity [Unknown]
  - Pneumonitis [Unknown]
  - Disease progression [Not Recovered/Not Resolved]
